FAERS Safety Report 13528889 (Version 1)
Quarter: 2017Q2

REPORT INFORMATION
  Report Type: Report from Study
  Country: US (occurrence: US)
  Receive Date: 20170509
  Receipt Date: 20170509
  Transmission Date: 20170830
  Serious: Yes (Other)
  Sender: FDA-Public Use
  Company Number: US-PFIZER INC-2017151486

PATIENT
  Age: 75 Year
  Sex: Female

DRUGS (1)
  1. TIGECYCLINE. [Suspect]
     Active Substance: TIGECYCLINE
     Indication: ACUTE MYELOID LEUKAEMIA
     Dosage: 350 MG, DAILY, CYCLIC
     Route: 041

REACTIONS (2)
  - Cardiac failure congestive [Not Recovered/Not Resolved]
  - Aspartate aminotransferase [Recovered/Resolved]
